FAERS Safety Report 12460903 (Version 1)
Quarter: 2016Q2

REPORT INFORMATION
  Report Type: Spontaneous
  Country: None (occurrence: US)
  Receive Date: 20160613
  Receipt Date: 20160613
  Transmission Date: 20160815
  Serious: No
  Sender: FDA-Public Use
  Company Number: US-CONCORDIA PHARMACEUTICALS INC.-CO-PL-US-2016-007

PATIENT
  Age: 64 Year
  Sex: Female

DRUGS (14)
  1. INDERAL [Concomitant]
     Active Substance: PROPRANOLOL HYDROCHLORIDE
  2. MAXIDEX [Concomitant]
     Active Substance: DEXAMETHASONE
  3. ESTRACE [Concomitant]
     Active Substance: ESTRADIOL
  4. CLOBETASOL [Concomitant]
     Active Substance: CLOBETASOL
  5. SYMBICORT [Concomitant]
     Active Substance: BUDESONIDE\FORMOTEROL FUMARATE DIHYDRATE
  6. KLOR-CON [Concomitant]
     Active Substance: POTASSIUM CHLORIDE
  7. XYZAL [Concomitant]
     Active Substance: LEVOCETIRIZINE DIHYDROCHLORIDE
  8. PREDNISONE. [Concomitant]
     Active Substance: PREDNISONE
  9. PLAQUENIL [Suspect]
     Active Substance: HYDROXYCHLOROQUINE SULFATE
     Indication: ARTHRITIS
  10. XOLAIR [Concomitant]
     Active Substance: OMALIZUMAB
  11. NEXIUM [Concomitant]
     Active Substance: ESOMEPRAZOLE MAGNESIUM
  12. BETAMETHASONE. [Concomitant]
     Active Substance: BETAMETHASONE
  13. SINGULAIR [Concomitant]
     Active Substance: MONTELUKAST SODIUM
  14. MACRODANTIN [Concomitant]
     Active Substance: NITROFURANTOIN

REACTIONS (1)
  - Urticaria [None]

NARRATIVE: CASE EVENT DATE: 201510
